FAERS Safety Report 4945677-7 (Version None)
Quarter: 2006Q1

REPORT INFORMATION
  Report Type: 
  Country: None (occurrence: None)
  Receive Date: 20060316
  Receipt Date: 20060201
  Transmission Date: 20060701
  Serious: Yes (Death, Hospitalization, Other)
  Sender: FDA-Public Use
  Company Number: US-BRISTOL-MYERS SQUIBB COMPANY-13267828

PATIENT
  Age: 58 Year
  Sex: Male

DRUGS (16)
  1. CARBOPLATIN [Suspect]
     Indication: NON-SMALL CELL LUNG CANCER
     Route: 042
     Dates: start: 20050624, end: 20050624
  2. TAXOL [Suspect]
     Indication: NON-SMALL CELL LUNG CANCER
     Route: 042
     Dates: start: 20050624, end: 20050624
  3. ZOFRAN [Concomitant]
     Indication: PREMEDICATION
     Route: 048
     Dates: start: 20050624, end: 20050624
  4. BENADRYL [Concomitant]
     Indication: PREMEDICATION
     Dates: start: 20050624, end: 20050624
  5. FAMOTIDINE [Concomitant]
     Indication: PREMEDICATION
     Dates: start: 20050624, end: 20050624
  6. DEXAMETHASONE TAB [Concomitant]
     Indication: PREMEDICATION
     Route: 042
     Dates: start: 20050624, end: 20050624
  7. OXYGEN [Concomitant]
  8. VIAGRA [Concomitant]
  9. GEMFIBROZIL [Concomitant]
  10. SPIRONOLACTONE [Concomitant]
  11. FUROSEMIDE [Concomitant]
  12. COUMADIN [Concomitant]
  13. POTASSIUM CHLORIDE [Concomitant]
  14. ATROVENT [Concomitant]
  15. ADVAIR DISKUS 100/50 [Concomitant]
  16. OXYCODONE HCL + ACETAMINOPHEN [Concomitant]

REACTIONS (7)
  - ATRIOVENTRICULAR BLOCK COMPLETE [None]
  - BRADYCARDIA [None]
  - CIRCULATORY COLLAPSE [None]
  - DEATH [None]
  - DYSPNOEA [None]
  - ELECTROMECHANICAL DISSOCIATION [None]
  - SYNCOPE [None]
